FAERS Safety Report 5309785-3 (Version None)
Quarter: 2007Q2

REPORT INFORMATION
  Report Type: 
  Country: None (occurrence: None)
  Receive Date: 20070427
  Receipt Date: 20060808
  Transmission Date: 20071010
  Serious: No
  Sender: FDA-Public Use
  Company Number: US-GLAXOSMITHKLINE-A0611807A

PATIENT
  Age: 68 Year
  Sex: Female
  Weight: 53.6 kg

DRUGS (2)
  1. ZOFRAN [Suspect]
     Indication: PROPHYLAXIS OF NAUSEA AND VOMITING
     Dosage: 32MG SEE DOSAGE TEXT
     Route: 042
     Dates: start: 20060621, end: 20060621
  2. DEXAMETHASONE 0.5MG TAB [Concomitant]
     Route: 042

REACTIONS (3)
  - DIZZINESS [None]
  - INFUSION SITE RASH [None]
  - VISUAL DISTURBANCE [None]
